FAERS Safety Report 9896565 (Version 1)
Quarter: 2014Q1

REPORT INFORMATION
  Report Type: Spontaneous
  Country: US (occurrence: US)
  Receive Date: 20140213
  Receipt Date: 20140213
  Transmission Date: 20141002
  Serious: No
  Sender: FDA-Public Use
  Company Number: US-BRISTOL-MYERS SQUIBB COMPANY-19114982

PATIENT
  Age: 62 Year
  Sex: Female
  Weight: 45.35 kg

DRUGS (3)
  1. ORENCIA [Suspect]
     Dosage: LAST INFUSION WAS ON 08JUL2013?NO OF INF:2
     Route: 042
  2. BENADRYL [Concomitant]
  3. METRAZOL [Concomitant]

REACTIONS (5)
  - Nausea [Unknown]
  - Decreased appetite [Unknown]
  - Tremor [Unknown]
  - Pyrexia [Unknown]
  - Fatigue [Unknown]
